FAERS Safety Report 6079511-1 (Version None)
Quarter: 2009Q1

REPORT INFORMATION
  Report Type: 
  Country: None (occurrence: None)
  Receive Date: 20090217
  Receipt Date: 20090211
  Transmission Date: 20090719
  Serious: Yes (Hospitalization)
  Sender: FDA-Public Use
  Company Number: GB-RANBAXY-2009RR-21758

PATIENT
  Age: 31 Year
  Sex: Female

DRUGS (2)
  1. ACETAMINOPHEN [Suspect]
     Dosage: UNK
  2. GRANOCYTE [Suspect]
     Indication: BONE MARROW TRANSPLANT
     Dosage: 263 UG, QD
     Route: 058
     Dates: start: 20090118, end: 20090120

REACTIONS (3)
  - CIRCULATORY COLLAPSE [None]
  - DIZZINESS [None]
  - MALAISE [None]
